FAERS Safety Report 7780634-7 (Version None)
Quarter: 2011Q3

REPORT INFORMATION
  Report Type: 
  Country: None (occurrence: None)
  Receive Date: 20110927
  Receipt Date: 20110107
  Transmission Date: 20111222
  Serious: No
  Sender: FDA-Public Use
  Company Number: US-BRISTOL-MYERS SQUIBB COMPANY-15476955

PATIENT
  Age: 86 Year
  Sex: Female
  Weight: 68 kg

DRUGS (3)
  1. ONGLYZA [Concomitant]
  2. ACTOS [Concomitant]
  3. AVAPRO [Suspect]
     Indication: HYPERTENSION

REACTIONS (1)
  - DYSPHAGIA [None]
